FAERS Safety Report 16855103 (Version 1)
Quarter: 2019Q3

REPORT INFORMATION
  Report Type: Spontaneous
  Country: US (occurrence: US)
  Receive Date: 20190926
  Receipt Date: 20190926
  Transmission Date: 20191005
  Serious: Yes (Other)
  Sender: FDA-Public Use
  Company Number: US-MALLINCKRODT-T201906448

PATIENT
  Age: 9 Month
  Sex: Male
  Weight: 6 kg

DRUGS (6)
  1. DEXMEDETOMIDINE. [Suspect]
     Active Substance: DEXMEDETOMIDINE
     Indication: PROCEDURAL PAIN
     Dosage: MAX DOSE 1.4 MCG/KG/H
     Route: 065
  2. METHADOSE [Suspect]
     Active Substance: METHADONE HYDROCHLORIDE
     Indication: PROCEDURAL PAIN
     Dosage: MAX DOSE, 0.1 MG/KG Q12H
     Route: 054
  3. FENTANYL. [Suspect]
     Active Substance: FENTANYL
     Indication: PROCEDURAL PAIN
     Dosage: MAX DOSE, DOSE 10 MCG/KG/H
     Route: 065
  4. MORPHINE [Suspect]
     Active Substance: MORPHINE
     Dosage: 0.01 MG/KG/DOSE, PRN
     Route: 065
  5. MORPHINE [Suspect]
     Active Substance: MORPHINE
     Indication: PROCEDURAL PAIN
     Dosage: MAX DOSE BASAL 0.01 MG/KG/H
     Route: 065
  6. MORPHINE [Suspect]
     Active Substance: MORPHINE
     Dosage: 0.1 MG/KG/DOSE Q2H, PRN
     Route: 065

REACTIONS (2)
  - Postoperative ileus [Recovering/Resolving]
  - Product use issue [Unknown]
